FAERS Safety Report 8581985-9 (Version None)
Quarter: 2012Q3

REPORT INFORMATION
  Report Type: 
  Country: None (occurrence: None)
  Receive Date: 20120809
  Receipt Date: 20120727
  Transmission Date: 20120928
  Serious: Yes (Disabling, Other)
  Sender: FDA-Public Use
  Company Number: GB-FRI-1000037167

PATIENT
  Age: 62 Year
  Sex: Female
  Weight: 65.5 kg

DRUGS (5)
  1. CITALOPRAM HYDROBROMIDE [Suspect]
     Indication: DEPRESSION
     Dosage: 20 MG
     Route: 048
     Dates: start: 20090411
  2. VOLTAREN [Concomitant]
     Indication: ARTHRITIS
     Dosage: 50 MG
     Route: 048
     Dates: start: 20090401
  3. ACETAMINOPHEN [Concomitant]
     Indication: ARTHRALGIA
     Dosage: 1000 MG
     Route: 048
  4. GLUCOSAMINE WITH CHONDROITIN [Concomitant]
     Indication: ARTHRITIS
     Route: 048
  5. ZOPICLONE [Concomitant]
     Indication: SLEEP DISORDER
     Dosage: 1.875 MG
     Route: 048
     Dates: start: 20090625

REACTIONS (5)
  - ONYCHOCLASIS [None]
  - NAIL RIDGING [None]
  - NAIL DISORDER [None]
  - AMNESIA [None]
  - NAIL GROWTH ABNORMAL [None]
